FAERS Safety Report 7207586-2 (Version None)
Quarter: 2010Q4

REPORT INFORMATION
  Report Type: 
  Country: None (occurrence: None)
  Receive Date: 20101221
  Receipt Date: 20101213
  Transmission Date: 20110411
  Serious: Yes (Death)
  Sender: FDA-Public Use
  Company Number: 2010SP058068

PATIENT
  Sex: Female

DRUGS (3)
  1. SAPHRIS [Suspect]
     Indication: BIPOLAR DISORDER
     Dosage: 5 MG; HS; SL
     Route: 060
     Dates: start: 20100601
  2. SERTRALINE [Concomitant]
  3. DIAZEPAM [Concomitant]

REACTIONS (5)
  - COMPLETED SUICIDE [None]
  - INTENTIONAL SELF-INJURY [None]
  - OESOPHAGEAL INJURY [None]
  - PHARYNGEAL INJURY [None]
  - TRAUMATIC LUNG INJURY [None]
